FAERS Safety Report 17300749 (Version 6)
Quarter: 2020Q2

REPORT INFORMATION
  Report Type: Report from Study
  Country: US (occurrence: US)
  Receive Date: 20200122
  Receipt Date: 20200512
  Transmission Date: 20200713
  Serious: Yes (Other)
  Sender: FDA-Public Use
  Company Number: US-PFIZER INC-2020000485

PATIENT
  Age: 64 Year
  Sex: Female

DRUGS (4)
  1. IBRANCE [Suspect]
     Active Substance: PALBOCICLIB
     Dosage: 125 MG, CYCLIC (DAILY FOR 21 DAYS, THEN 7 DAYS OFF)
     Route: 048
     Dates: start: 20191230
  2. IBRANCE [Suspect]
     Active Substance: PALBOCICLIB
     Dosage: 100 MG, CYCLIC, (IBRANCE FOR 21 DAYS, 7 DAYS OFF)
     Route: 048
     Dates: start: 20200311
  3. IBRANCE [Suspect]
     Active Substance: PALBOCICLIB
     Indication: BREAST CANCER METASTATIC
     Dosage: 125 MG, CYCLIC (DAILY FOR 21 DAYS, THEN 7 DAYS OFF)
     Route: 048
     Dates: start: 20191111, end: 20191219
  4. FEMARA [Concomitant]
     Active Substance: LETROZOLE
     Indication: BREAST CANCER METASTATIC
     Dosage: 2.5 MG, DAILY
     Route: 048
     Dates: start: 20191111

REACTIONS (13)
  - Abdominal discomfort [Recovered/Resolved]
  - Fall [Recovered/Resolved]
  - Swelling face [Recovered/Resolved]
  - Platelet count decreased [Recovered/Resolved]
  - Gastrooesophageal reflux disease [Recovered/Resolved]
  - Leukopenia [Recovered/Resolved]
  - Hypertension [Unknown]
  - Balance disorder [Recovered/Resolved]
  - Renal impairment [Recovered/Resolved]
  - Flatulence [Recovered/Resolved]
  - Bone marrow failure [Recovered/Resolved]
  - Fatigue [Recovered/Resolved]
  - Brain oedema [Recovered/Resolved]

NARRATIVE: CASE EVENT DATE: 2019
